FAERS Safety Report 24340423 (Version 3)
Quarter: 2024Q4

REPORT INFORMATION
  Report Type: Spontaneous
  Country: US (occurrence: US)
  Receive Date: 20240919
  Receipt Date: 20241007
  Transmission Date: 20250114
  Serious: Yes (Life-Threatening, Hospitalization)
  Sender: PFIZER
  Company Number: US-MLMSERVICE-20240911-PI187763-00175-2

PATIENT
  Age: 85 Year
  Sex: Female
  Weight: 57.9 kg

DRUGS (1)
  1. HEPARIN SODIUM [Suspect]
     Active Substance: HEPARIN SODIUM
     Indication: Thrombosis prophylaxis
     Dosage: 5000 IU, 3X/DAY
     Route: 058

REACTIONS (4)
  - Coagulopathy [Recovered/Resolved]
  - Cerebral mass effect [Recovering/Resolving]
  - Haemorrhage intracranial [Recovering/Resolving]
  - Arachnoid cyst [Recovering/Resolving]
